FAERS Safety Report 6893349-4 (Version None)
Quarter: 2010Q3

REPORT INFORMATION
  Report Type: 
  Country: None (occurrence: None)
  Receive Date: 20100731
  Receipt Date: 20090819
  Transmission Date: 20110219
  Serious: No
  Sender: FDA-Public Use
  Company Number: US-PFIZER INC-2009258904

PATIENT
  Sex: Male
  Weight: 102 kg

DRUGS (5)
  1. LIPITOR [Suspect]
     Indication: BLOOD CHOLESTEROL INCREASED
     Dosage: UNK
     Route: 048
     Dates: start: 19940101, end: 20020101
  2. ALTACE [Concomitant]
     Dosage: UNK
     Route: 048
  3. WELLBUTRIN [Concomitant]
     Route: 048
  4. PAXIL [Concomitant]
     Route: 048
  5. TOPROL-XL [Concomitant]
     Dosage: UNK
     Route: 048

REACTIONS (3)
  - HEPATIC ENZYME INCREASED [None]
  - MUSCLE DISORDER [None]
  - MUSCLE TIGHTNESS [None]
